FAERS Safety Report 7407457-2 (Version None)
Quarter: 2011Q2

REPORT INFORMATION
  Report Type: 
  Country: None (occurrence: None)
  Receive Date: 20110411
  Receipt Date: 20110407
  Transmission Date: 20111010
  Serious: Yes (Hospitalization, Other)
  Sender: FDA-Public Use
  Company Number: US-CEPHALON-2009008041

PATIENT
  Sex: Female
  Weight: 111 kg

DRUGS (20)
  1. VICODIN [Concomitant]
     Dates: start: 19920101
  2. HYDROCHLOROTHIAZIDE [Concomitant]
     Dates: start: 19960101
  3. ACETAMINOPHEN [Concomitant]
  4. COQ-10 [Concomitant]
  5. WELCHOL [Concomitant]
     Dates: start: 20050101
  6. CALCIUM CITRATE [Concomitant]
     Dates: start: 20000101
  7. PROVIGIL [Suspect]
     Indication: SOMNOLENCE
     Route: 048
     Dates: start: 20090301
  8. LYRICA [Concomitant]
     Route: 048
     Dates: start: 20071101, end: 20071128
  9. SKELAXIN [Concomitant]
     Dates: start: 20090701
  10. MULTI-VITAMIN [Concomitant]
  11. TRAMADOL HCL [Concomitant]
     Dates: start: 20030101
  12. FLEXERIL [Concomitant]
     Dates: start: 20090301
  13. BONIVA [Concomitant]
     Dates: start: 20080101
  14. VITAMIN D [Concomitant]
     Dates: start: 20080101
  15. AMOXICILLIN [Concomitant]
     Dates: start: 20080312, end: 20080404
  16. PROVIGIL [Suspect]
     Indication: NARCOLEPSY
     Route: 048
     Dates: start: 20071121, end: 20080101
  17. PROVIGIL [Suspect]
     Indication: SLEEP APNOEA SYNDROME
     Route: 048
     Dates: start: 20080101, end: 20090301
  18. CYMBALTA [Concomitant]
     Dates: start: 20090701
  19. LEVOTHYROXINE SODIUM [Concomitant]
     Dates: start: 20080101
  20. BENTYL [Concomitant]
     Dates: start: 19920101

REACTIONS (4)
  - DRUG INEFFECTIVE [None]
  - CELLULITIS [None]
  - RASH PRURITIC [None]
  - URTICARIA [None]
